FAERS Safety Report 6686963-2 (Version None)
Quarter: 2010Q2

REPORT INFORMATION
  Report Type: 
  Country: None (occurrence: None)
  Receive Date: 20100419
  Receipt Date: 20100408
  Transmission Date: 20101027
  Serious: Yes (Other)
  Sender: FDA-Public Use
  Company Number: PHHY2010GB23438

PATIENT
  Sex: Male

DRUGS (1)
  1. NEORAL [Suspect]
     Indication: HEART TRANSPLANT

REACTIONS (4)
  - ARTERIOSCLEROSIS CORONARY ARTERY [None]
  - FEELING ABNORMAL [None]
  - NEUROPATHY PERIPHERAL [None]
  - STENT PLACEMENT [None]
